FAERS Safety Report 7162422-8 (Version None)
Quarter: 2010Q4

REPORT INFORMATION
  Report Type: 
  Country: None (occurrence: None)
  Receive Date: 20101215
  Receipt Date: 20091021
  Transmission Date: 20110411
  Serious: Yes (Hospitalization, Other)
  Sender: FDA-Public Use
  Company Number: US-PFIZER INC-2006109435

PATIENT
  Sex: Male
  Weight: 70.295 kg

DRUGS (14)
  1. LYRICA [Suspect]
     Indication: NEUROPATHY PERIPHERAL
     Dosage: 150 MG, 2X/DAY
     Route: 048
     Dates: start: 20060701
  2. LYRICA [Suspect]
     Indication: DIABETIC NEUROPATHY
  3. ACETYLSALICYLIC ACID [Concomitant]
     Route: 065
  4. NORVASC [Concomitant]
     Route: 065
  5. PROSCAR [Concomitant]
     Route: 065
  6. PLAVIX [Concomitant]
     Route: 065
  7. COREG [Concomitant]
     Route: 065
  8. LASIX [Concomitant]
     Route: 065
  9. OMEPRAZOLE [Concomitant]
     Route: 065
  10. ZETIA [Concomitant]
     Route: 065
  11. FENTANYL [Concomitant]
     Route: 062
  12. LANOXIN [Concomitant]
  13. IMDUR [Concomitant]
     Dosage: UNK
  14. FLOMAX [Concomitant]
     Dosage: UNK

REACTIONS (11)
  - ABASIA [None]
  - DIZZINESS [None]
  - DRUG INEFFECTIVE [None]
  - DYSKINESIA [None]
  - HYPERSOMNIA [None]
  - MEMORY IMPAIRMENT [None]
  - PAIN [None]
  - PNEUMONIA [None]
  - SEDATION [None]
  - SOMNOLENCE [None]
  - WEIGHT INCREASED [None]
